FAERS Safety Report 20515924 (Version 2)
Quarter: 2022Q1

REPORT INFORMATION
  Report Type: Spontaneous
  Country: TW (occurrence: TW)
  Receive Date: 20220225
  Receipt Date: 20220328
  Transmission Date: 20220423
  Serious: No
  Sender: FDA-Public Use
  Company Number: None

PATIENT
  Age: 67 Year
  Sex: Female

DRUGS (7)
  1. QUETIAPINE FUMARATE [Suspect]
     Active Substance: QUETIAPINE FUMARATE
     Indication: Dementia
     Dosage: 25 MG, QD (BEFORE SLEEP)
     Route: 065
  2. QUETIAPINE FUMARATE [Suspect]
     Active Substance: QUETIAPINE FUMARATE
     Indication: Psychotic symptom
  3. RIVASTIGMINE [Suspect]
     Active Substance: RIVASTIGMINE
     Indication: Dementia
     Dosage: 9.5 MILLIGRAM, QD EVERY 24 HR(TRANSDERMAL PATCH)
     Route: 062
  4. RIVASTIGMINE [Suspect]
     Active Substance: RIVASTIGMINE
     Indication: Psychotic symptom
     Dosage: UNK (COMBINED WITH ARIPIPRAZOLE 15 MILLIGRAMS)
     Route: 062
  5. RIVASTIGMINE [Suspect]
     Active Substance: RIVASTIGMINE
     Dosage: UNK (COMBINED WITH 400 MG ARIPIPRAZOLE LONG-ACTING INJECTABLE)
     Route: 062
  6. FLUPENTIXOL [Suspect]
     Active Substance: FLUPENTIXOL
     Indication: Dementia
     Dosage: 0.5 MILLIGRAM, BID
     Route: 065
  7. FLUPENTIXOL [Suspect]
     Active Substance: FLUPENTIXOL
     Indication: Psychotic symptom

REACTIONS (1)
  - Somnolence [Unknown]
